FAERS Safety Report 24413770 (Version 1)
Quarter: 2024Q4

REPORT INFORMATION
  Report Type: Report from Study
  Country: KR (occurrence: KR)
  Receive Date: 20241008
  Receipt Date: 20241008
  Transmission Date: 20250115
  Serious: Yes (Hospitalization)
  Sender: SANDOZ
  Company Number: KR-BEIGENE-BGN-2023-007182

PATIENT
  Age: 72 Year
  Sex: Male
  Weight: 87 kg

DRUGS (8)
  1. OXALIPLATIN [Suspect]
     Active Substance: OXALIPLATIN
     Indication: Adenocarcinoma gastric
     Dosage: 130 MG/M2, Q3W
     Route: 042
     Dates: start: 20230609, end: 20230703
  2. ZANIDATAMAB [Suspect]
     Active Substance: ZANIDATAMAB
     Indication: Adenocarcinoma gastric
     Dosage: 2400 MG
     Route: 042
     Dates: start: 20230609, end: 20230703
  3. AKYNZEO [Concomitant]
     Indication: Vomiting
     Dosage: 300 MG, ONCE
     Route: 065
     Dates: start: 20230703, end: 20230703
  4. CAPECITABINE [Concomitant]
     Active Substance: CAPECITABINE
     Indication: Adenocarcinoma gastric
     Dosage: 1000 MG/M2, BID
     Route: 048
     Dates: start: 20230609, end: 20230712
  5. CHLORPHENIRAMINE [Concomitant]
     Active Substance: CHLORPHENIRAMINE
     Indication: Infusion related reaction
     Dosage: 4 MG, Q3W
     Route: 065
     Dates: start: 20230703
  6. DEXAMETHASONE [Concomitant]
     Active Substance: DEXAMETHASONE
     Indication: Infusion related reaction
     Dosage: 10 MG, Q3W
     Route: 065
     Dates: start: 20230703
  7. RAMOSETRON HYDROCHLORIDE [Concomitant]
     Active Substance: RAMOSETRON HYDROCHLORIDE
     Indication: Vomiting
     Dosage: 0.1 GRAM, QD
     Route: 065
     Dates: start: 20230703, end: 20230712
  8. Suspen [Concomitant]
     Indication: Infusion related reaction
     Dosage: 650 MG, Q3W
     Route: 065
     Dates: start: 20230703

REACTIONS (1)
  - COVID-19 [Recovered/Resolved]

NARRATIVE: CASE EVENT DATE: 20230714
